FAERS Safety Report 8581244-4 (Version None)
Quarter: 2012Q3

REPORT INFORMATION
  Report Type: 
  Country: None (occurrence: None)
  Receive Date: 20120809
  Receipt Date: 20120804
  Transmission Date: 20120928
  Serious: Yes (Other)
  Sender: FDA-Public Use
  Company Number: PHHY2012MX068158

PATIENT
  Sex: Female

DRUGS (2)
  1. BISOPROLOL FUMARATE AND HYDROCHLOROTHIAZIDE [Concomitant]
     Indication: HYPERTENSION
     Dosage: 2 TABLETS  DAILY
     Route: 048
     Dates: start: 20090101
  2. EXFORGE HCT [Suspect]
     Indication: HYPERTENSION
     Dosage: 1 TABLET (160/5/12.5 MG) DAILY
     Route: 048

REACTIONS (2)
  - COUGH [None]
  - ASTHMA [None]
